FAERS Safety Report 8500029-8 (Version None)
Quarter: 2012Q3

REPORT INFORMATION
  Report Type: 
  Country: None (occurrence: None)
  Receive Date: 20120710
  Receipt Date: 20120626
  Transmission Date: 20120928
  Serious: Yes (Hospitalization, Other)
  Sender: FDA-Public Use
  Company Number: US-VALEANT-2012VX002937

PATIENT
  Age: 36 Year
  Sex: Male
  Weight: 64 kg

DRUGS (6)
  1. KEPPRA [Suspect]
     Route: 065
     Dates: start: 20120615, end: 20120615
  2. LAMICTAL [Suspect]
     Route: 065
     Dates: start: 20120615, end: 20120615
  3. SYNTHROID [Suspect]
     Route: 065
     Dates: start: 20120615, end: 20120615
  4. CARBATROL [Suspect]
     Route: 065
     Dates: start: 20120615, end: 20120615
  5. VIMPAT [Suspect]
     Route: 065
     Dates: start: 20120615, end: 20120615
  6. DIASTAT [Suspect]
     Route: 054
     Dates: start: 20120615, end: 20120615

REACTIONS (2)
  - MEMORY IMPAIRMENT [None]
  - OVERDOSE [None]
